FAERS Safety Report 16149660 (Version 1)
Quarter: 2019Q2

REPORT INFORMATION
  Report Type: Spontaneous
  Country: US (occurrence: US)
  Receive Date: 20190402
  Receipt Date: 20190402
  Transmission Date: 20190711
  Serious: No
  Sender: FDA-Public Use
  Company Number: US-ELI_LILLY_AND_COMPANY-US201903010825

PATIENT
  Sex: Male

DRUGS (1)
  1. EMGALITY [Suspect]
     Active Substance: GALCANEZUMAB-GNLM
     Indication: TENSION HEADACHE
     Dosage: 120 MG, UNKNOWN
     Route: 058
     Dates: start: 201812

REACTIONS (3)
  - Tension headache [Unknown]
  - Affective disorder [Unknown]
  - Off label use [Unknown]

NARRATIVE: CASE EVENT DATE: 201812
